FAERS Safety Report 6904139-8 (Version None)
Quarter: 2010Q3

REPORT INFORMATION
  Report Type: 
  Country: None (occurrence: None)
  Receive Date: 20100804
  Receipt Date: 20090319
  Transmission Date: 20110219
  Serious: No
  Sender: FDA-Public Use
  Company Number: US-PFIZER INC-2008096494

PATIENT
  Sex: Male
  Weight: 94.1 kg

DRUGS (3)
  1. LYRICA [Suspect]
     Dosage: 25 MG, 2X/DAY
     Dates: start: 20081031, end: 20081107
  2. NORCO [Concomitant]
  3. NEURONTIN [Concomitant]

REACTIONS (3)
  - JOINT SWELLING [None]
  - PRURITUS [None]
  - RASH [None]
